FAERS Safety Report 16642054 (Version 3)
Quarter: 2019Q4

REPORT INFORMATION
  Report Type: Spontaneous
  Country: JP (occurrence: JP)
  Receive Date: 20190729
  Receipt Date: 20191001
  Transmission Date: 20200122
  Serious: Yes (Life-Threatening, Hospitalization, Other)
  Sender: FDA-Public Use
  Company Number: JP-PFIZER INC-2019262873

PATIENT
  Age: 72 Year
  Sex: Female
  Weight: 44 kg

DRUGS (8)
  1. GLAKAY [Concomitant]
     Active Substance: MENATETRENONE
     Indication: OSTEOPOROSIS
     Dosage: 15 MG, 3X/DAY
     Route: 048
     Dates: start: 20050726, end: 20190510
  2. CELECOX [Concomitant]
     Active Substance: CELECOXIB
     Indication: RHEUMATOID ARTHRITIS
     Dosage: 100 MG, 2X/DAY
     Route: 048
     Dates: start: 20140205, end: 20190510
  3. FOLIAMIN [Suspect]
     Active Substance: FOLIC ACID
     Indication: FOLATE DEFICIENCY
     Dosage: 5 MG/WEEK ON FRIDAYS
     Route: 048
     Dates: start: 2001, end: 20190510
  4. ADALAT [Suspect]
     Active Substance: NIFEDIPINE
     Indication: HYPERTENSION
     Dosage: 20 MG, 1X/DAY
     Route: 048
     Dates: start: 20050726, end: 20190510
  5. RHEUMATREX [Suspect]
     Active Substance: METHOTREXATE SODIUM
     Indication: RHEUMATOID ARTHRITIS
     Dosage: 4 MG WEEKLY ON WEDNESDAYS
     Route: 048
     Dates: start: 20010116, end: 20190510
  6. PREDNISOLONE. [Suspect]
     Active Substance: PREDNISOLONE
     Indication: RHEUMATOID ARTHRITIS
     Dosage: 3 MG, 1X/DAY
     Route: 048
     Dates: start: 20050726, end: 20190510
  7. ISALON [Suspect]
     Active Substance: UNSPECIFIED INGREDIENT
     Indication: GASTRITIS
     Dosage: 100 MG, 3X/DAY
     Route: 048
     Dates: start: 20050726, end: 20190510
  8. METHYCOBAL [Suspect]
     Active Substance: METHYLCOBALAMIN
     Indication: NEUROPATHY PERIPHERAL
     Dosage: 500 UG, 2X/DAY
     Route: 048
     Dates: start: 20130212, end: 20190510

REACTIONS (6)
  - Malnutrition [Recovering/Resolving]
  - Hypertension [Recovering/Resolving]
  - Haemorrhage subcutaneous [Recovering/Resolving]
  - Inappropriate schedule of product administration [Unknown]
  - Pancytopenia [Recovered/Resolved]
  - Restlessness [Recovering/Resolving]

NARRATIVE: CASE EVENT DATE: 2005
